FAERS Safety Report 25117187 (Version 3)
Quarter: 2025Q4

REPORT INFORMATION
  Report Type: Spontaneous
  Country: EU (occurrence: EU)
  Receive Date: 20250325
  Receipt Date: 20251009
  Transmission Date: 20260118
  Serious: Yes (Other)
  Sender: AUROBINDO
  Company Number: EU-SUN PHARMACEUTICAL INDUSTRIES LTD-2025R1-498026

PATIENT
  Age: 11 Year
  Sex: Female

DRUGS (10)
  1. IBUPROFEN [Suspect]
     Active Substance: IBUPROFEN
     Indication: Chest pain
     Dosage: UNK
     Route: 065
  2. IBUPROFEN [Suspect]
     Active Substance: IBUPROFEN
     Indication: Pericarditis
  3. OMEPRAZOLE [Suspect]
     Active Substance: OMEPRAZOLE
     Indication: Chest pain
     Dosage: UNK
     Route: 065
  4. OMEPRAZOLE [Suspect]
     Active Substance: OMEPRAZOLE
     Indication: Pericarditis
  5. COLCHICINE [Suspect]
     Active Substance: COLCHICINE
     Indication: Chest pain
     Dosage: UNK
     Route: 065
  6. COLCHICINE [Suspect]
     Active Substance: COLCHICINE
     Indication: Pericarditis
  7. CEFTRIAXONE [Concomitant]
     Active Substance: CEFTRIAXONE
     Indication: Bacterial infection
     Dosage: UNK
     Route: 065
  8. ALTEPLASE [Concomitant]
     Active Substance: ALTEPLASE
     Indication: Procoagulant therapy
     Dosage: 2 DOSES WERE ADMINISTERED
     Route: 065
  9. METHYLPREDNISOLONE [Concomitant]
     Active Substance: METHYLPREDNISOLONE
     Indication: Systemic lupus erythematosus
     Dosage: 15 MILLIGRAM/KILOGRAM
     Route: 065
  10. PREDNISONE [Concomitant]
     Active Substance: PREDNISONE
     Indication: Systemic lupus erythematosus
     Dosage: 40 MILLIGRAM, ONCE A DAY (30 MG IN THE MORNING + 10 MG IN THE EVENING)
     Route: 065

REACTIONS (5)
  - Conjunctivitis [Unknown]
  - Condition aggravated [Unknown]
  - Normocytic anaemia [Unknown]
  - N-terminal prohormone brain natriuretic peptide increased [Unknown]
  - Off label use [Unknown]
